FAERS Safety Report 9768280 (Version 5)
Quarter: 2014Q2

REPORT INFORMATION
  Report Type: Spontaneous
  Country: IT (occurrence: IT)
  Receive Date: 20131217
  Receipt Date: 20140421
  Transmission Date: 20141212
  Serious: Yes (Other)
  Sender: FDA-Public Use
  Company Number: IT-PFIZER INC-2013360160

PATIENT
  Age: 75 Year
  Sex: Male

DRUGS (15)
  1. ZOLOFT [Suspect]
     Indication: DEPRESSION
     Dosage: 50 MG, DAILY
     Route: 048
     Dates: start: 20130601, end: 20130904
  2. LASIX [Suspect]
     Indication: DIURETIC THERAPY
     Dosage: 25 UG, DAILY
     Route: 048
     Dates: start: 20130101, end: 20130904
  3. LASIX [Suspect]
     Dosage: UNK, ALTERNATE DAY
     Route: 048
  4. RISPERDAL [Suspect]
     Dosage: 1.5 ML, DAILY
     Route: 048
     Dates: start: 20130605, end: 20130904
  5. CIPROFLOXACINA [Suspect]
     Indication: URINARY TRACT INFECTION
     Dosage: 500 MG, DAILY
     Route: 048
     Dates: start: 20130902, end: 20130903
  6. MIRTAZAPINA [Suspect]
     Indication: DEPRESSION
     Dosage: 30 MG, DAILY
     Route: 048
     Dates: start: 20130601, end: 20130904
  7. LANSOX [Concomitant]
     Dosage: UNK
  8. TOP-NITRO [Concomitant]
     Dosage: UNK
  9. HUMULIN [Concomitant]
     Dosage: UNK
  10. SERETIDE [Concomitant]
     Dosage: UNK
  11. SPIRIVA [Concomitant]
     Dosage: UNK
  12. COUMADINE [Concomitant]
     Dosage: UNK
  13. DIBASE [Concomitant]
     Dosage: UNK
  14. POTASSIO CANREONATO SANDOX [Concomitant]
     Dosage: UNK
  15. TORVAST [Concomitant]
     Dosage: UNK

REACTIONS (8)
  - Speech disorder [Recovering/Resolving]
  - Hypotension [Recovering/Resolving]
  - Disorientation [Recovering/Resolving]
  - Sopor [Recovering/Resolving]
  - Syncope [Recovering/Resolving]
  - Faecaloma [Unknown]
  - Haemoglobin decreased [Unknown]
  - C-reactive protein abnormal [Unknown]
